FAERS Safety Report 23573869 (Version 1)
Quarter: 2024Q1

REPORT INFORMATION
  Report Type: Report from Study
  Country: US (occurrence: US)
  Receive Date: 20240228
  Receipt Date: 20240228
  Transmission Date: 20240409
  Serious: Yes (Other)
  Sender: FDA-Public Use
  Company Number: US-AMGEN-USASL2024036796

PATIENT
  Age: 65 Year
  Sex: Male

DRUGS (3)
  1. XGEVA [Suspect]
     Active Substance: DENOSUMAB
     Indication: Plasma cell myeloma
     Dosage: UNK UNK, Q4WK
     Route: 065
     Dates: start: 2020, end: 2022
  2. PROCRIT [Suspect]
     Active Substance: ERYTHROPOIETIN
     Indication: Product used for unknown indication
     Dosage: UNK
     Route: 065
  3. VITAMIN B12 [Concomitant]
     Active Substance: CYANOCOBALAMIN

REACTIONS (11)
  - Jaw disorder [Unknown]
  - Neoplasm malignant [Unknown]
  - Spinal compression fracture [Unknown]
  - Acute kidney injury [Unknown]
  - Gingival disorder [Unknown]
  - Muscle spasms [Unknown]
  - Mobility decreased [Unknown]
  - Facial spasm [Unknown]
  - Dysarthria [Unknown]
  - Unevaluable therapy [Unknown]
  - Fat tissue increased [Unknown]
